FAERS Safety Report 7876758-6 (Version None)
Quarter: 2011Q4

REPORT INFORMATION
  Report Type: 
  Country: None (occurrence: None)
  Receive Date: 20111031
  Receipt Date: 20111021
  Transmission Date: 20120403
  Serious: Yes (Hospitalization, Other)
  Sender: FDA-Public Use
  Company Number: BR-ASTRAZENECA-2011SE64674

PATIENT
  Age: 57 Year
  Sex: Male
  Weight: 84.3 kg

DRUGS (13)
  1. METFORMIN HCL [Suspect]
  2. ISORDIL [Concomitant]
  3. HYDROCHLOROTHIAZIDE [Concomitant]
  4. CLOPIDOGREL [Concomitant]
  5. METFORMIN HCL [Suspect]
  6. LOSARTAN POTASSIUM [Concomitant]
  7. SIMVASTATIN [Concomitant]
  8. METOPROLOL SUCCINATE [Suspect]
     Route: 048
  9. ASPIRIN [Concomitant]
  10. GLIMEPIRIDE [Concomitant]
  11. ROSUVASTATIN [Suspect]
     Route: 048
  12. ATENOLOL [Suspect]
     Route: 048
  13. GLICLAZIDA MR [Concomitant]

REACTIONS (7)
  - DYSLIPIDAEMIA [None]
  - BLOOD GLUCOSE INCREASED [None]
  - ACUTE MYOCARDIAL INFARCTION [None]
  - OVERWEIGHT [None]
  - ISCHAEMIC STROKE [None]
  - DIABETES MELLITUS [None]
  - HYPERTENSION [None]
